FAERS Safety Report 8462029-6 (Version None)
Quarter: 2012Q2

REPORT INFORMATION
  Report Type: 
  Country: None (occurrence: None)
  Receive Date: 20120625
  Receipt Date: 20120618
  Transmission Date: 20120825
  Serious: Yes (Hospitalization)
  Sender: FDA-Public Use
  Company Number: CA-JNJFOC-20120308687

PATIENT
  Sex: Male
  Weight: 165.56 kg

DRUGS (2)
  1. REMICADE [Suspect]
     Indication: PSORIASIS
     Route: 042
     Dates: start: 20120216, end: 20120101
  2. REMICADE [Suspect]
     Route: 042
     Dates: start: 20110407

REACTIONS (1)
  - BASAL GANGLIA STROKE [None]
